FAERS Safety Report 7415387-5 (Version None)
Quarter: 2011Q2

REPORT INFORMATION
  Report Type: 
  Country: None (occurrence: None)
  Receive Date: 20110414
  Receipt Date: 20110405
  Transmission Date: 20111010
  Serious: Yes (Hospitalization)
  Sender: FDA-Public Use
  Company Number: B0711755A

PATIENT
  Age: 69 Year
  Sex: Female
  Weight: 41 kg

DRUGS (23)
  1. TYKERB [Suspect]
     Indication: BREAST CANCER
     Dosage: 1250MG PER DAY
     Route: 048
     Dates: start: 20100813, end: 20101219
  2. XELODA [Suspect]
     Dosage: 1800MG PER DAY
     Route: 048
     Dates: start: 20100907, end: 20101014
  3. XELODA [Suspect]
     Dosage: 1800MG PER DAY
     Route: 048
     Dates: start: 20101029, end: 20101202
  4. PYDOXAL [Concomitant]
     Route: 048
     Dates: start: 20100907, end: 20100920
  5. NOVAMINE [Concomitant]
     Indication: PROPHYLAXIS
     Route: 048
     Dates: start: 20101203, end: 20101210
  6. TYKERB [Suspect]
     Dosage: 1250MG PER DAY
     Route: 048
     Dates: start: 20101222
  7. ATELEC [Concomitant]
     Indication: HYPERTENSION
     Route: 048
     Dates: end: 20100817
  8. TAKEPRON [Concomitant]
     Indication: PROPHYLAXIS
     Route: 048
     Dates: start: 20100813, end: 20100820
  9. LANSOPRAZOLE [Concomitant]
     Indication: PROPHYLAXIS
     Route: 048
     Dates: start: 20100821
  10. MARZULENE-S [Concomitant]
     Indication: PROPHYLAXIS
     Route: 048
     Dates: start: 20100813
  11. MAGLAX [Concomitant]
     Indication: CONSTIPATION PROPHYLAXIS
     Route: 048
     Dates: start: 20101203
  12. LOXOPROFEN [Concomitant]
     Indication: CANCER PAIN
     Route: 048
     Dates: start: 20101220
  13. OXYCONTIN [Suspect]
     Indication: CANCER PAIN
     Route: 048
     Dates: start: 20101203, end: 20101210
  14. DEMECLOCYCLINE HCL [Concomitant]
     Indication: INAPPROPRIATE ANTIDIURETIC HORMONE SECRETION
     Route: 048
     Dates: end: 20100817
  15. FUROSEMIDE [Concomitant]
     Indication: INAPPROPRIATE ANTIDIURETIC HORMONE SECRETION
     Route: 048
     Dates: start: 20100816
  16. PYDOXAL [Concomitant]
     Indication: PROPHYLAXIS
     Route: 048
     Dates: start: 20100813, end: 20100817
  17. ZOMETA [Concomitant]
     Route: 042
     Dates: start: 20060727
  18. CALONAL [Concomitant]
     Indication: CANCER PAIN
     Route: 048
     Dates: start: 20110111
  19. XELODA [Suspect]
     Dosage: 2400MG PER DAY
     Route: 048
     Dates: start: 20100813, end: 20100815
  20. XELODA [Suspect]
     Dosage: 1800MG PER DAY
     Route: 048
     Dates: start: 20110205
  21. CELEBREX [Concomitant]
     Indication: CANCER PAIN
     Route: 048
     Dates: start: 20101217, end: 20101219
  22. LOXONIN [Concomitant]
     Indication: CANCER PAIN
     Route: 048
     Dates: start: 20100813, end: 20101217
  23. OXINORM [Concomitant]
     Indication: CANCER PAIN
     Route: 048
     Dates: start: 20101114, end: 20101210

REACTIONS (7)
  - ALTERED STATE OF CONSCIOUSNESS [None]
  - VOMITING [None]
  - HYPOGLYCAEMIA [None]
  - MALAISE [None]
  - DECREASED APPETITE [None]
  - HYPONATRAEMIA [None]
  - NAUSEA [None]
